FAERS Safety Report 12967013 (Version 8)
Quarter: 2019Q3

REPORT INFORMATION
  Report Type: Report from Study
  Country: US (occurrence: US)
  Receive Date: 20161123
  Receipt Date: 20190924
  Transmission Date: 20191004
  Serious: Yes (Death, Life-Threatening, Hospitalization, Other)
  Sender: FDA-Public Use
  Company Number: US-ROCHE-1855581

PATIENT
  Age: 16 Year
  Sex: Female
  Weight: 53.79 kg

DRUGS (11)
  1. PREDNISONE. [Concomitant]
     Active Substance: PREDNISONE
     Indication: IMMUNOSUPPRESSION
  2. ATIVAN [Concomitant]
     Active Substance: LORAZEPAM
  3. MYCOPHENOLATE MOFETIL. [Suspect]
     Active Substance: MYCOPHENOLATE MOFETIL
     Indication: IMMUNOSUPPRESSION
     Route: 065
  4. BLINDED RITUXIMAB [Suspect]
     Active Substance: RITUXIMAB
     Indication: LUNG TRANSPLANT
     Route: 042
     Dates: start: 20161009, end: 20161009
  5. TACROLIMUS. [Suspect]
     Active Substance: TACROLIMUS
     Indication: IMMUNOSUPPRESSION
     Route: 065
  6. TYLENOL [Concomitant]
     Active Substance: ACETAMINOPHEN
     Indication: PREMEDICATION
     Route: 065
     Dates: start: 20161009
  7. BENADRYL [Concomitant]
     Active Substance: DIPHENHYDRAMINE HYDROCHLORIDE
     Indication: PREMEDICATION
     Route: 065
     Dates: start: 20161009
  8. TAMIFLU [Concomitant]
     Active Substance: OSELTAMIVIR PHOSPHATE
  9. BLINDED RITUXIMAB [Suspect]
     Active Substance: RITUXIMAB
     Dosage: MOST RECENT DOSE
     Route: 042
     Dates: start: 20161020
  10. GLUCAGON. [Concomitant]
     Active Substance: GLUCAGON
  11. LANTUS [Concomitant]
     Active Substance: INSULIN GLARGINE
     Dosage: 3 UNITS PER ENDO INSTRUCTION
     Route: 065

REACTIONS (8)
  - Pseudomonas infection [Recovered/Resolved]
  - Transplant rejection [Unknown]
  - Fatigue [Recovered/Resolved]
  - Headache [Recovered/Resolved]
  - Respiratory syncytial virus infection [Recovered/Resolved]
  - Posterior reversible encephalopathy syndrome [Recovered/Resolved]
  - Diarrhoea [Recovered/Resolved]
  - Pneumonia [Fatal]

NARRATIVE: CASE EVENT DATE: 20161113
